FAERS Safety Report 21472553 (Version 1)
Quarter: 2022Q4

REPORT INFORMATION
  Report Type: Spontaneous
  Country: JP (occurrence: JP)
  Receive Date: 20221018
  Receipt Date: 20221018
  Transmission Date: 20230113
  Serious: Yes (Other)
  Sender: FDA-Public Use
  Company Number: JP-PFIZER INC-202201228299

PATIENT
  Sex: Male

DRUGS (1)
  1. HALCION [Suspect]
     Active Substance: TRIAZOLAM
     Dosage: UNKNOWN DOSE FOR OVER 30 YEARS
     Route: 048

REACTIONS (3)
  - Drug dependence [Unknown]
  - Angle closure glaucoma [Unknown]
  - Contraindicated product administered [Unknown]
